FAERS Safety Report 8901764 (Version 1)
Quarter: 2012Q4

REPORT INFORMATION
  Report Type: Spontaneous
  Country: DE (occurrence: None)
  Receive Date: 20121101
  Receipt Date: 20121101
  Transmission Date: 20130627
  Serious: Yes (Hospitalization, Other)
  Sender: FDA-Public Use
  Company Number: 2011RR-43233

PATIENT
  Age: 74 Year
  Sex: Female
  Weight: 54 kg

DRUGS (9)
  1. SIMVASTATIN (SIMVASTATIN) [Suspect]
     Route: 048
     Dates: end: 20110223
  2. PREDNISOLONE [Suspect]
     Indication: GIANT CELL ARTERITIS
     Route: 048
     Dates: start: 201010, end: 20110223
  3. ACLASTA (ZOLEDRONIC ACID) [Concomitant]
  4. ASS (ACETYLSALICYLIC ACID) [Concomitant]
  5. PANTOZOL [Concomitant]
  6. ENALAPRIL (ENALAPRIL) [Concomitant]
  7. VERAPAMIL (VERAPAMIL) [Concomitant]
  8. CALCILAC KT (COLECALCIFEROL, CALCIUM CARBONATE) [Concomitant]
  9. PENTALONG (PENTAERITHRITYL TETRANITRATE) [Concomitant]

REACTIONS (2)
  - Myopathy [None]
  - Cushing^s syndrome [None]
